FAERS Safety Report 8394942-2 (Version None)
Quarter: 2012Q2

REPORT INFORMATION
  Report Type: 
  Country: None (occurrence: None)
  Receive Date: 20120530
  Receipt Date: 20111016
  Transmission Date: 20120825
  Serious: No
  Sender: FDA-Public Use
  Company Number: US-GLAXOSMITHKLINE-A0949576A

PATIENT
  Age: 48 Year
  Sex: Female
  Weight: 67.3 kg

DRUGS (13)
  1. FLOLAN [Suspect]
     Indication: PULMONARY ARTERIAL HYPERTENSION
     Dosage: 5.9NGKM UNKNOWN
     Route: 042
     Dates: start: 20030225
  2. LETAIRIS [Suspect]
     Indication: PRODUCT USED FOR UNKNOWN INDICATION
     Dosage: 5MG PER DAY
     Route: 048
     Dates: start: 20110101, end: 20111001
  3. OMEPRAZOLE [Concomitant]
     Dosage: 20MG PER DAY
     Route: 048
  4. COUMADIN [Concomitant]
     Route: 048
  5. OXYBUTYNIN [Concomitant]
     Dosage: 10MG PER DAY
     Route: 048
  6. DULCOLAX [Concomitant]
     Route: 048
  7. LORAZEPAM [Concomitant]
     Dosage: 1MG AS REQUIRED
     Route: 048
  8. TRUVADA [Concomitant]
     Dosage: 300MG PER DAY
     Route: 048
  9. ALBUTEROL [Concomitant]
  10. SINGULAIR [Concomitant]
     Dosage: 10MG PER DAY
     Route: 048
  11. DIGOXIN [Concomitant]
     Dosage: 250MCG PER DAY
     Route: 048
  12. REVATIO [Concomitant]
     Dosage: 3TAB THREE TIMES PER DAY
     Route: 048
  13. ALBUTEROL [Concomitant]
     Dosage: 90MCG AS REQUIRED
     Route: 055

REACTIONS (4)
  - DYSPNOEA [None]
  - DIZZINESS [None]
  - GAIT DISTURBANCE [None]
  - MOVEMENT DISORDER [None]
